FAERS Safety Report 21232605 (Version 2)
Quarter: 2023Q2

REPORT INFORMATION
  Report Type: Other
  Country: GB (occurrence: None)
  Receive Date: 20220819
  Receipt Date: 20230421
  Transmission Date: 20230721
  Serious: Yes (Hospitalization)
  Sender: FDA-Public Use
  Company Number: GB-ROCHE-2636571

PATIENT
  Sex: Female

DRUGS (21)
  1. TOCILIZUMAB [Suspect]
     Active Substance: TOCILIZUMAB
     Indication: Rheumatoid arthritis
     Route: 058
     Dates: start: 20200402
  2. TOCILIZUMAB [Suspect]
     Active Substance: TOCILIZUMAB
     Route: 058
     Dates: start: 20200520
  3. TOCILIZUMAB [Suspect]
     Active Substance: TOCILIZUMAB
     Route: 058
     Dates: start: 202205
  4. ALBUTEROL [Concomitant]
     Active Substance: ALBUTEROL
  5. LAMOTRIGINE [Concomitant]
     Active Substance: LAMOTRIGINE
  6. BENZYDAMINE [Concomitant]
     Active Substance: BENZYDAMINE
  7. PREDNISOLONE [Concomitant]
     Active Substance: PREDNISOLONE
  8. SERTRALINE [Concomitant]
     Active Substance: SERTRALINE HYDROCHLORIDE
  9. QUETIAPINE [Concomitant]
     Active Substance: QUETIAPINE
  10. MICONAZOLE [Concomitant]
     Active Substance: MICONAZOLE
  11. CLINITAS [Concomitant]
  12. ACETAMINOPHEN [Concomitant]
     Active Substance: ACETAMINOPHEN
  13. DOXYCYCLINE [Concomitant]
     Active Substance: DOXYCYCLINE
  14. AZITHROMYCIN [Concomitant]
     Active Substance: AZITHROMYCIN
  15. NACSYS [Concomitant]
  16. TRELEGY ELLIPTA [Concomitant]
     Active Substance: FLUTICASONE FUROATE\UMECLIDINIUM BROMIDE\VILANTEROL TRIFENATATE
  17. CARBOCYSTEINE [Concomitant]
     Active Substance: CARBOCYSTEINE
  18. MIRABEGRON [Concomitant]
     Active Substance: MIRABEGRON
  19. SODIUM CHLORIDE [Concomitant]
     Active Substance: SODIUM CHLORIDE
  20. ESOMEPRAZOLE [Concomitant]
     Active Substance: ESOMEPRAZOLE
  21. DOXYCYCLINE [Concomitant]
     Active Substance: DOXYCYCLINE

REACTIONS (10)
  - Pneumonia [Unknown]
  - Blood sodium decreased [Unknown]
  - Dyspnoea [Unknown]
  - Malaise [Unknown]
  - Blood iron decreased [Unknown]
  - Blood sodium decreased [Unknown]
  - Hypersensitivity [Unknown]
  - Pain [Unknown]
  - Drug ineffective [Unknown]
  - Lung disorder [Unknown]

NARRATIVE: CASE EVENT DATE: 20200601
